FAERS Safety Report 16905894 (Version 3)
Quarter: 2020Q3

REPORT INFORMATION
  Report Type: Report from Study
  Country: US (occurrence: US)
  Receive Date: 20191010
  Receipt Date: 20200821
  Transmission Date: 20201102
  Serious: Yes (Hospitalization, Other)
  Sender: FDA-Public Use
  Company Number: US-BIOGEN-2019BI00756902

PATIENT
  Age: 50 Year
  Sex: Female

DRUGS (9)
  1. TECFIDERA [Suspect]
     Active Substance: DIMETHYL FUMARATE
     Route: 065
     Dates: start: 20141107, end: 20141126
  2. TECFIDERA [Suspect]
     Active Substance: DIMETHYL FUMARATE
     Dosage: MAINTENANCE DOSE
     Route: 048
     Dates: start: 20190613
  3. TECFIDERA [Suspect]
     Active Substance: DIMETHYL FUMARATE
     Dosage: MAINTENANCE DOSE
     Route: 048
     Dates: start: 201907
  4. TECFIDERA [Suspect]
     Active Substance: DIMETHYL FUMARATE
     Dosage: 120MG IN AM/240MG IN PM WEEK : WEEK 3
     Route: 048
  5. TECFIDERA [Suspect]
     Active Substance: DIMETHYL FUMARATE
     Dosage: 240MG : WEEK 4
     Route: 048
  6. TECFIDERA [Suspect]
     Active Substance: DIMETHYL FUMARATE
     Route: 065
     Dates: start: 20190613
  7. TECFIDERA [Suspect]
     Active Substance: DIMETHYL FUMARATE
     Indication: MULTIPLE SCLEROSIS
     Dosage: FIRST WEEK
     Route: 048
     Dates: start: 20190624
  8. TECFIDERA [Suspect]
     Active Substance: DIMETHYL FUMARATE
     Dosage: WEEK 2
     Route: 048
  9. TECFIDERA [Suspect]
     Active Substance: DIMETHYL FUMARATE
     Dosage: MAINTENANCE DOSE
     Route: 048
     Dates: start: 20190715

REACTIONS (23)
  - Balance disorder [Not Recovered/Not Resolved]
  - Feeling of despair [Not Recovered/Not Resolved]
  - Multiple sclerosis relapse [Recovered/Resolved with Sequelae]
  - Fatigue [Unknown]
  - Gait disturbance [Recovered/Resolved]
  - Vascular stenosis [Unknown]
  - Paraesthesia [Unknown]
  - Flatulence [Unknown]
  - Hypoaesthesia [Unknown]
  - Memory impairment [Unknown]
  - Nausea [Recovered/Resolved]
  - Product dose omission issue [Unknown]
  - Depressed mood [Not Recovered/Not Resolved]
  - Urinary tract infection [Not Recovered/Not Resolved]
  - Carpal tunnel syndrome [Unknown]
  - Cerebrovascular accident [Unknown]
  - Underdose [Unknown]
  - Dysphagia [Unknown]
  - Anxiety [Unknown]
  - Abdominal pain upper [Recovered/Resolved]
  - Flushing [Recovered/Resolved]
  - Insomnia [Unknown]
  - Diarrhoea [Unknown]

NARRATIVE: CASE EVENT DATE: 201907
